FAERS Safety Report 4938556-2 (Version None)
Quarter: 2006Q1

REPORT INFORMATION
  Report Type: 
  Country: None (occurrence: None)
  Receive Date: 20060306
  Receipt Date: 20060222
  Transmission Date: 20060701
  Serious: Yes (Hospitalization)
  Sender: FDA-Public Use
  Company Number: 2006028443

PATIENT
  Age: 69 Year
  Sex: Male
  Weight: 93 kg

DRUGS (5)
  1. CAMPTOSAR [Suspect]
     Indication: RECTAL CANCER METASTATIC
     Dosage: 420 MG (420 MG, EVERY 3 WEEKS), INTRAVENOUS
     Route: 042
     Dates: start: 20050912
  2. BEVACIZUMAB (BEVACIZUMAB) [Suspect]
     Indication: RECTAL CANCER METASTATIC
     Dosage: 700 MG (700 MG, EVERY 3 WEEKS), INTRAVENOUS
     Route: 042
     Dates: start: 20050912
  3. CAPECITABINE (CAPECITABINE) [Suspect]
     Indication: RECTAL CANCER METASTATIC
     Dosage: 3 TO 4 TABLETS (500 MG, DAILY FOR 14 DAYS/CYCLE), ORAL
     Route: 048
     Dates: start: 20050912
  4. DELIX PLUS (HYDROCHLOROTHIAZIDE, RAMIPRIL) [Concomitant]
  5. MELOXICAM (MELOXICAM) [Concomitant]

REACTIONS (4)
  - ANAL FISTULA [None]
  - ENTEROVESICAL FISTULA [None]
  - URINARY TRACT DISORDER [None]
  - URINARY TRACT INFECTION [None]
